FAERS Safety Report 9846162 (Version 1)
Quarter: 2013Q4

REPORT INFORMATION
  Report Type: Spontaneous
  Country: US (occurrence: None)
  Receive Date: 20131223
  Receipt Date: 20131223
  Transmission Date: 20140711
  Serious: Yes (Other)
  Sender: FDA-Public Use
  Company Number: CABO-13003689

PATIENT
  Age: 19 Year
  Sex: Male
  Weight: 57.7 kg

DRUGS (7)
  1. COMETRIQ (CABOZANTINIB) CAPSULE [Suspect]
     Indication: BRAIN NEOPLASM
     Route: 048
     Dates: start: 20130903, end: 201310
  2. LEVOTHYROXINE (LEVOTHYROXINE SODIUM) [Concomitant]
  3. GABAPENTIN (GABAPENTIN) [Concomitant]
  4. ZYRTEC (CETIRIZINE HYDROCHLORIDE) [Concomitant]
  5. ANDROGEL (TESTOSTERONE) [Concomitant]
  6. MEGESTROL (MEGESTROL ACETATE) [Concomitant]
  7. PANTOPRAZOLE (PANTOPRAZOLE) [Concomitant]

REACTIONS (2)
  - Malignant neoplasm progression [None]
  - Off label use [None]
